FAERS Safety Report 4269826-1 (Version None)
Quarter: 2004Q1

REPORT INFORMATION
  Report Type: 
  Country: None (occurrence: None)
  Receive Date: 20040112
  Receipt Date: 20031229
  Transmission Date: 20041129
  Serious: Yes (Other)
  Sender: FDA-Public Use
  Company Number: HQWYE996031DEC03

PATIENT
  Age: 62 Year
  Sex: Male
  Weight: 81.72 kg

DRUGS (33)
  1. PRIMATENE MIST [Suspect]
     Indication: ASTHMA
     Dosage: ONE INHALATION AS NEEDED, INHALATION
     Route: 055
     Dates: start: 19910101
  2. ZETIA [Concomitant]
  3. ALBUTEROL [Concomitant]
  4. COMBIVENT [Concomitant]
  5. ALBUTEROL SULFATE (SALBUTAMOL SULFATE) [Concomitant]
  6. LISINOPRIL [Concomitant]
  7. SILTUSSIN (AMMONIUM CHLORIDE/GUAIFENESIN/MENTHOL) [Concomitant]
  8. INTAL [Concomitant]
  9. SEREVENT DISKUS (SALMETEROL XINAFOATE) [Concomitant]
  10. GEMFIBROZIL [Concomitant]
  11. MIACALCIN [Concomitant]
  12. ANALGESIC (MENTHOL/METHYL SALICYLATE) [Concomitant]
  13. AMOXICILLIN W/CLAVUNALATE POTASSIUM [Concomitant]
  14. METHYLPREDNISOLONE [Concomitant]
  15. SPIRONOLACTONE [Concomitant]
  16. PULMICORT [Concomitant]
  17. PROTONIX [Concomitant]
  18. SINGULAIR [Concomitant]
  19. MAALOX (ALUMINUM HYDROXIDE GEL/MAGNESIUM HYDROXIDE) [Concomitant]
  20. MINOXIDIL [Concomitant]
  21. DOCUSATE SODIUM [Concomitant]
  22. PREVACID [Concomitant]
  23. ALBUTEROL SULFATE (SALBUTAMOL SULFATE) [Concomitant]
  24. ZOCOR [Concomitant]
  25. UNSPECIFIED ANTIHYPERTENSIVE AGENT [Concomitant]
  26. CLONIDINE HCL [Concomitant]
  27. FUROSEMIDE [Concomitant]
  28. POTASSIUM CHLORIDE [Concomitant]
  29. WARFARIN SODIUM [Concomitant]
  30. ISOSORBIDE DINITRATE [Concomitant]
  31. THEOPHYLLINE [Concomitant]
  32. PREDNISONE [Concomitant]
  33. ADVAIR DISKUS [Concomitant]

REACTIONS (1)
  - DRUG DEPENDENCE [None]
